FAERS Safety Report 5798005-1 (Version None)
Quarter: 2008Q3

REPORT INFORMATION
  Report Type: 
  Country: None (occurrence: None)
  Receive Date: 20080702
  Receipt Date: 20050705
  Transmission Date: 20090109
  Serious: Yes (Death)
  Sender: FDA-Public Use
  Company Number: B0386786A

PATIENT
  Age: 17 Year
  Sex: Male

DRUGS (1)
  1. HALFAN [Suspect]
     Indication: MALARIA

REACTIONS (1)
  - DEATH [None]
